FAERS Safety Report 21362865 (Version 1)
Quarter: 2022Q3

REPORT INFORMATION
  Report Type: Spontaneous
  Country: US (occurrence: US)
  Receive Date: 20220922
  Receipt Date: 20220922
  Transmission Date: 20221026
  Serious: No
  Sender: FDA-Public Use
  Company Number: US-Ipsen Biopharmaceuticals, Inc.-2022-26332

PATIENT
  Age: 53 Year
  Sex: Female

DRUGS (3)
  1. DYSPORT [Suspect]
     Active Substance: ABOBOTULINUMTOXINA
     Indication: Skin wrinkling
     Dosage: 60 UNITS (GLABELLAR LINES)
     Route: 065
     Dates: start: 20220430, end: 20220430
  2. HYALURONIC ACID\LIDOCAINE [Concomitant]
     Active Substance: HYALURONIC ACID\LIDOCAINE
     Indication: Skin wrinkling
     Dosage: INJECTABLE GEL WITH LIDOCAINE, 1 CC
     Dates: start: 20220430, end: 20220430
  3. RADIESSE [Concomitant]
     Active Substance: TRIBASIC CALCIUM PHOSPHATE
     Indication: Skin wrinkling
     Dosage: 1.5 CC

REACTIONS (5)
  - Drug ineffective [Unknown]
  - Drug ineffective [Unknown]
  - Off label use [Unknown]
  - Prescribed overdose [Unknown]
  - Prescribed overdose [Unknown]

NARRATIVE: CASE EVENT DATE: 20220501
